FAERS Safety Report 8649381 (Version 5)
Quarter: 2013Q1

REPORT INFORMATION
  Report Type: Report from Study
  Country: IT (occurrence: IT)
  Receive Date: 20120705
  Receipt Date: 20130301
  Transmission Date: 20140127
  Serious: Yes (Hospitalization)
  Sender: FDA-Public Use
  Company Number: IT-VERTEX PHARMACEUTICALS INC.-000000000000000996

PATIENT
  Age: 48 Year
  Sex: Male
  Weight: 63 kg

DRUGS (6)
  1. VX-950 (TELAPREVIR) [Suspect]
     Indication: HEPATITIS C
     Dosage: DOSAGE FORM: TABLET
     Route: 048
     Dates: start: 20120608
  2. RIBAVIRIN [Suspect]
     Indication: HEPATITIS C
     Dosage: DOSAGE FORM: TABLET
     Route: 048
     Dates: start: 20120608
  3. PEGINTERFERON ALFA-2A [Suspect]
     Indication: HEPATITIS C
     Dosage: DOSAGE FORM: INJECTION
     Route: 058
     Dates: start: 20120608
  4. TENOFOVIR [Concomitant]
     Indication: HIV INFECTION
     Dosage: DOSAGE FORM: UNKNOWN
  5. TENOFOVIR [Concomitant]
  6. ATAZANAVIR [Concomitant]
     Indication: HIV INFECTION

REACTIONS (2)
  - Hypophosphataemia [Recovered/Resolved]
  - Hyperbilirubinaemia [Recovered/Resolved]
